FAERS Safety Report 21269234 (Version 2)
Quarter: 2022Q4

REPORT INFORMATION
  Report Type: Report from Study
  Country: CA (occurrence: CA)
  Receive Date: 20220830
  Receipt Date: 20221027
  Transmission Date: 20230112
  Serious: Yes (Other)
  Sender: FDA-Public Use
  Company Number: CA-TEVA-2022-CA-2068793

PATIENT
  Age: 75 Year
  Sex: Male

DRUGS (3)
  1. OCTREOTIDE [Suspect]
     Active Substance: OCTREOTIDE
     Indication: Carcinoid tumour
     Route: 030
     Dates: start: 20220322
  2. OCTREOTIDE [Suspect]
     Active Substance: OCTREOTIDE
     Route: 030
     Dates: start: 20220322
  3. Sando LAR [Concomitant]
     Indication: Product used for unknown indication

REACTIONS (1)
  - Metastatic carcinoid tumour [Unknown]

NARRATIVE: CASE EVENT DATE: 20220101
